FAERS Safety Report 5068906-0 (Version None)
Quarter: 2006Q3

REPORT INFORMATION
  Report Type: 
  Country: None (occurrence: None)
  Receive Date: 20060802
  Receipt Date: 20050915
  Transmission Date: 20061208
  Serious: No
  Sender: FDA-Public Use
  Company Number: US-BRISTOL-MYERS SQUIBB COMPANY-13111497

PATIENT
  Age: 81 Year
  Sex: Female
  Weight: 66 kg

DRUGS (12)
  1. COUMADIN [Suspect]
     Indication: CARDIOVASCULAR DISORDER
     Dosage: 2 MG DAILY FOR 3 DAYS, 1 MG DAILY FOR 1 DAY, 2 MG DAILY FOR 3 DAYS
  2. COUMADIN [Suspect]
     Indication: PALPITATIONS
     Dosage: 2 MG DAILY FOR 3 DAYS, 1 MG DAILY FOR 1 DAY, 2 MG DAILY FOR 3 DAYS
  3. FOSAMAX [Concomitant]
  4. ALTACE [Concomitant]
  5. ATENOLOL [Concomitant]
  6. NIFEDIPINE [Concomitant]
  7. ZOCOR [Concomitant]
  8. LANOXIN [Concomitant]
  9. CALCIUM SUPPLEMENT [Concomitant]
  10. B12 [Concomitant]
  11. COLACE [Concomitant]
  12. MULTIVITAMIN [Concomitant]
     Dates: end: 20050901

REACTIONS (2)
  - ECCHYMOSIS [None]
  - SCAB [None]
